FAERS Safety Report 5215179-1 (Version None)
Quarter: 2007Q1

REPORT INFORMATION
  Report Type: 
  Country: None (occurrence: None)
  Receive Date: 20070122
  Receipt Date: 20070110
  Transmission Date: 20070707
  Serious: Yes (Other)
  Sender: FDA-Public Use
  Company Number: GB-PFIZER INC-2007004024

PATIENT
  Age: 62 Year
  Sex: Male
  Weight: 90 kg

DRUGS (6)
  1. SILDENAFIL CITRATE [Suspect]
     Indication: ERECTILE DYSFUNCTION
     Route: 048
     Dates: start: 20010101, end: 20050101
  2. AMOXICILLIN [Concomitant]
     Route: 048
     Dates: start: 20020320, end: 20020327
  3. METRONIDAZOLE [Concomitant]
     Route: 048
     Dates: start: 20020320, end: 20020327
  4. LACIDIPINE [Concomitant]
     Route: 048
     Dates: start: 20000718, end: 20020412
  5. LANSOPRAZOLE [Concomitant]
     Route: 048
     Dates: start: 20050808, end: 20050909
  6. OMEPRAZOLE [Concomitant]
     Route: 048
     Dates: start: 20020320, end: 20020327

REACTIONS (2)
  - AGGRESSION [None]
  - PSYCHIATRIC SYMPTOM [None]
